FAERS Safety Report 25744386 (Version 1)
Quarter: 2025Q3

REPORT INFORMATION
  Report Type: Spontaneous
  Country: US (occurrence: US)
  Receive Date: 20250901
  Receipt Date: 20250901
  Transmission Date: 20251020
  Serious: No
  Sender: JOHNSON AND JOHNSON
  Company Number: US-JNJFOC-20250835503

PATIENT
  Sex: Female

DRUGS (1)
  1. REMICADE [Suspect]
     Active Substance: INFLIXIMAB
     Indication: Product used for unknown indication
     Route: 041

REACTIONS (5)
  - Dyspnoea [Unknown]
  - Malaise [Unknown]
  - Wheezing [Unknown]
  - Cough [Unknown]
  - Migraine [Unknown]

NARRATIVE: CASE EVENT DATE: 20250203
